FAERS Safety Report 14695825 (Version 2)
Quarter: 2018Q2

REPORT INFORMATION
  Report Type: Report from Study
  Country: US (occurrence: US)
  Receive Date: 20180329
  Receipt Date: 20180413
  Transmission Date: 20180711
  Serious: No
  Sender: FDA-Public Use
  Company Number: US-JAZZ-2018-US-004887

PATIENT
  Sex: Female

DRUGS (13)
  1. XYREM [Suspect]
     Active Substance: SODIUM OXYBATE
     Indication: NARCOLEPSY
     Dosage: 2.25 G, BID
     Route: 048
     Dates: start: 201712, end: 201712
  2. XYREM [Suspect]
     Active Substance: SODIUM OXYBATE
     Indication: CATAPLEXY
     Dosage: DOSE ADJUSTMENT
     Route: 048
     Dates: start: 201712, end: 201801
  3. CLOTRIMAZOLE. [Concomitant]
     Active Substance: CLOTRIMAZOLE
  4. VALACYCLOVIR HCL [Concomitant]
     Active Substance: VALACYCLOVIR HYDROCHLORIDE
  5. ADDERALL [Concomitant]
     Active Substance: AMPHETAMINE ASPARTATE\AMPHETAMINE SULFATE\DEXTROAMPHETAMINE SACCHARATE\DEXTROAMPHETAMINE SULFATE
  6. ACETAMINOPHEN W/HYDROCODONE [Concomitant]
     Active Substance: ACETAMINOPHEN\HYDROCODONE
  7. PROAIR HFA [Concomitant]
     Active Substance: ALBUTEROL SULFATE
  8. ALPRAZOLAM. [Concomitant]
     Active Substance: ALPRAZOLAM
  9. XYREM [Suspect]
     Active Substance: SODIUM OXYBATE
     Dosage: 4.5 G, BID
     Route: 048
     Dates: start: 201801, end: 201801
  10. IBUPROFEN. [Concomitant]
     Active Substance: IBUPROFEN
  11. MODAFINIL. [Concomitant]
     Active Substance: MODAFINIL
  12. NEURONTIN [Concomitant]
     Active Substance: GABAPENTIN
  13. SULFAMETHOXAZOLE AND TRIMETHOPRIM [Concomitant]
     Active Substance: SULFAMETHOXAZOLE\TRIMETHOPRIM

REACTIONS (2)
  - Localised infection [Unknown]
  - Social anxiety disorder [Unknown]
